FAERS Safety Report 4673358-6 (Version None)
Quarter: 2005Q2

REPORT INFORMATION
  Report Type: 
  Country: None (occurrence: None)
  Receive Date: 20050523
  Receipt Date: 20050512
  Transmission Date: 20051028
  Serious: Yes (Hospitalization)
  Sender: FDA-Public Use
  Company Number: JP-2005-005905

PATIENT
  Age: 29 Year
  Sex: Male

DRUGS (1)
  1. PROSCOPE 300(IOPROMIDE) N/A [Suspect]
     Indication: COMPUTERISED TOMOGRAM
     Dosage: 100 ML, 1 DOSE, INTRAVENOUS
     Route: 042
     Dates: start: 20050419, end: 20050419

REACTIONS (9)
  - ANAPHYLACTIC SHOCK [None]
  - FALL [None]
  - FEELING HOT [None]
  - GENERALISED ERYTHEMA [None]
  - LOSS OF CONSCIOUSNESS [None]
  - PAIN OF SKIN [None]
  - PALPITATIONS [None]
  - PARAESTHESIA [None]
  - SENSORY DISTURBANCE [None]
